FAERS Safety Report 5502598-9 (Version None)
Quarter: 2007Q4

REPORT INFORMATION
  Report Type: 
  Country: None (occurrence: None)
  Receive Date: 20071031
  Receipt Date: 20071023
  Transmission Date: 20080405
  Serious: Yes (Other)
  Sender: FDA-Public Use
  Company Number: PHBS2004BE11005

PATIENT
  Age: 60 Year
  Sex: Male
  Weight: 76 kg

DRUGS (14)
  1. ZOMETA [Suspect]
     Indication: MULTIPLE MYELOMA
     Dosage: 4 MG, QMO
     Route: 042
     Dates: start: 20030109, end: 20040809
  2. HALOPERIDOL [Concomitant]
     Route: 065
     Dates: start: 19980601
  3. PROZAC [Concomitant]
     Route: 065
     Dates: start: 19980601
  4. ZYLORIC [Concomitant]
     Route: 065
     Dates: start: 19980601
  5. ASPIRIN [Concomitant]
     Route: 065
  6. MAREVAN [Concomitant]
     Indication: THROMBOSIS
     Route: 065
     Dates: start: 20010614, end: 20020103
  7. MESULID [Concomitant]
     Route: 065
     Dates: start: 20020819, end: 20021017
  8. MODURETIC 5-50 [Concomitant]
     Route: 065
     Dates: start: 20021018
  9. PIROXICAM [Concomitant]
     Route: 065
     Dates: start: 20021115
  10. CONTRAMAL [Concomitant]
     Route: 065
     Dates: start: 20021115
  11. BONEFOS [Concomitant]
     Dosage: 800 MG, BID
     Route: 065
     Dates: end: 20050101
  12. AREDIA [Suspect]
     Indication: MULTIPLE MYELOMA
     Dosage: 90 MG, QMO
     Route: 042
     Dates: start: 19960101, end: 20020101
  13. INTRON A [Concomitant]
     Dosage: 5 MILLION UNITS/3 WEEKS
     Route: 065
     Dates: start: 19970211, end: 20030609
  14. SELOZOK [Concomitant]
     Route: 065
     Dates: start: 19980601

REACTIONS (18)
  - AORTIC STENOSIS [None]
  - CORONARY ARTERY BYPASS [None]
  - DENTAL PROSTHESIS PLACEMENT [None]
  - DEPRESSION [None]
  - INFLAMMATION [None]
  - MYOCARDIAL INFARCTION [None]
  - OSTEOMYELITIS [None]
  - OSTEONECROSIS [None]
  - PAIN IN JAW [None]
  - PARAESTHESIA [None]
  - PHARYNGOLARYNGEAL PAIN [None]
  - RADIATION INJURY [None]
  - STOMATITIS [None]
  - SURGERY [None]
  - THROMBOSIS [None]
  - TOOTH EXTRACTION [None]
  - TOOTHACHE [None]
  - WOUND DEBRIDEMENT [None]
